FAERS Safety Report 18948105 (Version 3)
Quarter: 2021Q1

REPORT INFORMATION
  Report Type: Spontaneous
  Country: IT (occurrence: IT)
  Receive Date: 20210226
  Receipt Date: 20210325
  Transmission Date: 20210420
  Serious: Yes (Other)
  Sender: FDA-Public Use
  Company Number: IT-ELI_LILLY_AND_COMPANY-IT202102011168

PATIENT
  Age: 53 Year
  Sex: Male
  Weight: 60 kg

DRUGS (4)
  1. EMGALITY [Suspect]
     Active Substance: GALCANEZUMAB-GNLM
     Indication: MIGRAINE PROPHYLAXIS
     Dosage: 1 DOSAGE FORM, UNKNOWN
     Route: 058
     Dates: start: 20200708, end: 20210207
  2. DELTACORTENE [Concomitant]
     Active Substance: PREDNISONE
     Indication: ARTHRALGIA
     Dosage: UNK, UNKNOWN
     Route: 048
  3. FELDENE [Concomitant]
     Active Substance: PIROXICAM
     Indication: ARTHRALGIA
     Dosage: 1 DOSAGE FORM, UNKNOWN
     Route: 048
  4. SIRDALUD [Concomitant]
     Active Substance: TIZANIDINE
     Indication: ARTHRALGIA
     Dosage: 1 DOSAGE FORM, UNKNOWN
     Route: 048

REACTIONS (3)
  - Depressed mood [Recovering/Resolving]
  - Libido decreased [Recovering/Resolving]
  - Erectile dysfunction [Recovering/Resolving]

NARRATIVE: CASE EVENT DATE: 20201015
